FAERS Safety Report 14710493 (Version 5)
Quarter: 2018Q2

REPORT INFORMATION
  Report Type: Report from Study
  Country: US (occurrence: US)
  Receive Date: 20180403
  Receipt Date: 20180612
  Transmission Date: 20180711
  Serious: No
  Sender: FDA-Public Use
  Company Number: PHEH2018US011200

PATIENT
  Age: 58 Year
  Sex: Male

DRUGS (2)
  1. COSENTYX [Suspect]
     Active Substance: SECUKINUMAB
     Indication: PSORIASIS
     Dosage: 300 MG, QMO
     Route: 058
     Dates: start: 20180210
  2. COSENTYX [Suspect]
     Active Substance: SECUKINUMAB
     Indication: PSORIATIC ARTHROPATHY
     Dosage: 300 MG, QMO
     Route: 058
     Dates: start: 20180308

REACTIONS (8)
  - Pain [Unknown]
  - Extrasystoles [Unknown]
  - Hypoacusis [Unknown]
  - Herpes zoster [Recovering/Resolving]
  - Heart rate decreased [Unknown]
  - Headache [Unknown]
  - Ill-defined disorder [Unknown]
  - Skin lesion [Unknown]

NARRATIVE: CASE EVENT DATE: 20180315
